FAERS Safety Report 7331257-5 (Version None)
Quarter: 2011Q1

REPORT INFORMATION
  Report Type: 
  Country: None (occurrence: None)
  Receive Date: 20110304
  Receipt Date: 20110302
  Transmission Date: 20110831
  Serious: Yes (Other)
  Sender: FDA-Public Use
  Company Number: CN-PFIZER INC-2011046282

PATIENT
  Age: 20 Year
  Sex: Female

DRUGS (3)
  1. ZELDOX [Suspect]
     Dosage: 80 MG, 1X/DAY
     Route: 048
     Dates: start: 20110101
  2. ZELDOX [Suspect]
     Dosage: UNK
     Route: 048
     Dates: start: 20110101
  3. ZELDOX [Suspect]
     Dosage: 120 MG, 1X/DAY
     Route: 048
     Dates: start: 20110101

REACTIONS (3)
  - BLOOD PRESSURE DECREASED [None]
  - CATAPLEXY [None]
  - ELECTROCARDIOGRAM QT PROLONGED [None]
